FAERS Safety Report 24684039 (Version 1)
Quarter: 2024Q4

REPORT INFORMATION
  Report Type: Spontaneous
  Country: US (occurrence: US)
  Receive Date: 20241202
  Receipt Date: 20241202
  Transmission Date: 20250115
  Serious: Yes (Hospitalization)
  Sender: SANOFI AVENTIS
  Company Number: US-SA-2024SA352473

PATIENT
  Age: 73 Year
  Sex: Female
  Weight: 77.27 kg

DRUGS (22)
  1. DUPIXENT [Suspect]
     Active Substance: DUPILUMAB
     Indication: Dermatitis atopic
     Dosage: 300 MG, QOW
     Route: 058
  2. ASPIRIN [Concomitant]
     Active Substance: ASPIRIN
  3. LISINOPRIL [Concomitant]
     Active Substance: LISINOPRIL
  4. LIDOCAINE [Concomitant]
     Active Substance: LIDOCAINE
  5. CARVEDILOL [Concomitant]
     Active Substance: CARVEDILOL
  6. PANTOPRAZOLE SODIUM [Concomitant]
     Active Substance: PANTOPRAZOLE SODIUM
  7. SODIUM SULFATE [Concomitant]
     Active Substance: SODIUM SULFATE
  8. POTASSIUM SULFATE [Concomitant]
     Active Substance: POTASSIUM SULFATE
  9. PREGABALIN [Concomitant]
     Active Substance: PREGABALIN
  10. AMIODARONE HYDROCHLORIDE [Concomitant]
     Active Substance: AMIODARONE HYDROCHLORIDE
  11. FLECAINIDE ACETATE [Concomitant]
     Active Substance: FLECAINIDE ACETATE
  12. XARELTO [Concomitant]
     Active Substance: RIVAROXABAN
  13. METOPROLOL SUCCINATE [Concomitant]
     Active Substance: METOPROLOL SUCCINATE
  14. LOSARTAN POTASSIUM [Concomitant]
     Active Substance: LOSARTAN POTASSIUM
  15. LAMOTRIGINE [Concomitant]
     Active Substance: LAMOTRIGINE
  16. METHOCARBAMOL [Concomitant]
     Active Substance: METHOCARBAMOL
  17. ONDANSETRON [Concomitant]
     Active Substance: ONDANSETRON
  18. AMBIEN CR [Concomitant]
     Active Substance: ZOLPIDEM TARTRATE
  19. VALACYCLOVIR [Concomitant]
     Active Substance: VALACYCLOVIR HYDROCHLORIDE
  20. HYDROCODONE [Concomitant]
     Active Substance: HYDROCODONE
  21. ACETAMINOPHEN [Concomitant]
     Active Substance: ACETAMINOPHEN
  22. CEPHALEXIN [Concomitant]
     Active Substance: CEPHALEXIN

REACTIONS (1)
  - Blood sodium decreased [Unknown]

NARRATIVE: CASE EVENT DATE: 20241101
